FAERS Safety Report 17915497 (Version 1)
Quarter: 2020Q2

REPORT INFORMATION
  Report Type: Spontaneous
  Country: DE (occurrence: DE)
  Receive Date: 20200619
  Receipt Date: 20200619
  Transmission Date: 20200714
  Serious: Yes (Life-Threatening)
  Sender: FDA-Public Use
  Company Number: DE-BAXTER-2020BAX011964

PATIENT
  Age: 44 Year
  Sex: Male
  Weight: 100 kg

DRUGS (5)
  1. SUFENTANIL [Concomitant]
     Active Substance: SUFENTANIL
     Indication: PRODUCT USED FOR UNKNOWN INDICATION
     Dosage: APPROXIMATELY 240 ML
     Route: 041
  2. PIPERACILLIN/TAZOBACTAM [Concomitant]
     Active Substance: PIPERACILLIN SODIUM\TAZOBACTAM SODIUM
     Indication: PRODUCT USED FOR UNKNOWN INDICATION
     Dosage: DAILY DOSE: 13.5 MG MILLGRAM(S) EVERY DAYS 3 SEPARATED DOSES
     Route: 042
     Dates: start: 20190805, end: 20190808
  3. CEFUROXIME. [Concomitant]
     Active Substance: CEFUROXIME
     Indication: PRODUCT USED FOR UNKNOWN INDICATION
     Dosage: DAILY DOSE: 4500 MG MILLGRAM(S) EVERY DAYS 3 SEPARATED DOSES
     Route: 042
     Dates: start: 20190725, end: 20190808
  4. SEVOFLURAN BAXTER 100 % FLUSSIGKEIT ZUR HERSTELLUNG EINES DAMPFS ZUR I [Suspect]
     Active Substance: SEVOFLURANE
     Indication: SEDATION
     Dosage: 0.6 - 1.8 VOL%, OPEN SYSTEM
     Route: 055
     Dates: start: 20190801, end: 20190808
  5. MIDAZOLAM. [Concomitant]
     Active Substance: MIDAZOLAM
     Indication: PRODUCT USED FOR UNKNOWN INDICATION
     Dosage: APPROXIMATELY 140 ML, FORM STRENGTH: 50 MG/50 ML
     Route: 041

REACTIONS (2)
  - Hypernatraemia [Recovering/Resolving]
  - Polyuria [Recovering/Resolving]

NARRATIVE: CASE EVENT DATE: 20190731
